FAERS Safety Report 6869883-X (Version None)
Quarter: 2010Q3

REPORT INFORMATION
  Report Type: 
  Country: None (occurrence: None)
  Receive Date: 20100722
  Receipt Date: 20080909
  Transmission Date: 20110219
  Serious: No
  Sender: FDA-Public Use
  Company Number: US-PFIZER INC-2008077190

PATIENT
  Sex: Female
  Weight: 73.94 kg

DRUGS (8)
  1. CHANTIX [Suspect]
     Indication: SMOKING CESSATION THERAPY
     Route: 048
     Dates: start: 20080825
  2. PRINZIDE [Concomitant]
  3. NEOSPORIN [Concomitant]
  4. PRILOSEC [Concomitant]
  5. PREVACID [Concomitant]
  6. ALL OTHER THERAPEUTIC PRODUCTS [Concomitant]
  7. EVISTA [Concomitant]
  8. ACETYLSALICYLIC ACID [Concomitant]

REACTIONS (2)
  - POLLAKIURIA [None]
  - POLYDIPSIA [None]
